FAERS Safety Report 11146774 (Version 2)
Quarter: 2015Q2

REPORT INFORMATION
  Report Type: Spontaneous
  Country: GB (occurrence: GB)
  Receive Date: 20150528
  Receipt Date: 20150630
  Transmission Date: 20150821
  Serious: Yes (Hospitalization, Other)
  Sender: FDA-Public Use
  Company Number: PHFR2015GB003991

PATIENT
  Age: 15 Year
  Sex: Female
  Weight: 90 kg

DRUGS (7)
  1. LACTULOSE. [Concomitant]
     Active Substance: LACTULOSE
     Indication: CONSTIPATION
     Dosage: 20 ML, QD
     Route: 065
  2. LACTULOSE. [Concomitant]
     Active Substance: LACTULOSE
     Dosage: (DOUBLE DOSE)
     Route: 065
  3. CLOZARIL [Suspect]
     Active Substance: CLOZAPINE
     Dosage: DOUBLE DOSE (DOSE UNSPECIFIED)
     Route: 048
     Dates: start: 20150520
  4. VALPROAT [Concomitant]
     Active Substance: VALPROATE SODIUM
     Dosage: (DOUBLE DOSE)
     Route: 065
     Dates: start: 20150520
  5. CLOZARIL [Suspect]
     Active Substance: CLOZAPINE
     Dosage: 250 MG, BID
     Route: 048
     Dates: start: 20150119
  6. CLOZARIL [Suspect]
     Active Substance: CLOZAPINE
     Dosage: 500 MG, QD
     Route: 048
     Dates: start: 20150203
  7. VALPROAT [Concomitant]
     Active Substance: VALPROATE SODIUM
     Indication: AFFECTIVE DISORDER
     Dosage: 600 MG, QD
     Route: 048
     Dates: start: 201311

REACTIONS (5)
  - Blood creatinine increased [Not Recovered/Not Resolved]
  - Confusional state [Unknown]
  - Glomerular filtration rate decreased [Unknown]
  - Incorrect dose administered [Recovered/Resolved]
  - Off label use [Unknown]

NARRATIVE: CASE EVENT DATE: 20150520
